FAERS Safety Report 9902736 (Version 2)
Quarter: 2014Q1

REPORT INFORMATION
  Report Type: Spontaneous
  Country: US (occurrence: US)
  Receive Date: 20140217
  Receipt Date: 20140307
  Transmission Date: 20141002
  Serious: Yes (Death, Hospitalization)
  Sender: FDA-Public Use
  Company Number: US-JNJFOC-20140207065

PATIENT
  Age: 66 Year
  Sex: Male
  Weight: 89.36 kg

DRUGS (8)
  1. REMICADE [Suspect]
     Indication: CROHN^S DISEASE
     Dosage: ASLO REPORTED AS 890 MG
     Route: 042
     Dates: start: 20130319
  2. REMICADE [Suspect]
     Indication: CROHN^S DISEASE
     Dosage: ALSO REPORTED AS 890 MG
     Route: 042
     Dates: start: 20140102, end: 20140102
  3. AZATHIOPRINE [Suspect]
     Indication: CROHN^S DISEASE
     Route: 048
     Dates: start: 20121214, end: 201302
  4. PENTASA [Concomitant]
     Indication: CROHN^S DISEASE
     Route: 048
     Dates: start: 20131214
  5. ENTOCORT [Concomitant]
     Indication: CROHN^S DISEASE
     Route: 048
     Dates: start: 20120703
  6. METOPROLOL [Concomitant]
     Route: 065
  7. LISINOPRIL [Concomitant]
     Route: 065
  8. CHLORTHALIDONE [Concomitant]
     Route: 065

REACTIONS (3)
  - Pancreatic carcinoma metastatic [Fatal]
  - Peritonitis bacterial [Unknown]
  - Drug ineffective [Unknown]
